FAERS Safety Report 21968970 (Version 1)
Quarter: 2023Q1

REPORT INFORMATION
  Report Type: Spontaneous
  Country: US (occurrence: None)
  Receive Date: 20230207
  Receipt Date: 20230207
  Transmission Date: 20230417
  Serious: Yes (unspecified)
  Sender: FDA-Public Use
  Company Number: None

PATIENT
  Age: 57 Year
  Sex: Female
  Weight: 77.85 kg

DRUGS (7)
  1. OZEMPIC [Suspect]
     Active Substance: SEMAGLUTIDE
     Indication: Insulin resistance
     Dosage: OTHER QUANTITY : 1 INJECTION(S);?OTHER FREQUENCY : WEEKLY;?
     Route: 058
     Dates: start: 20230112, end: 20230207
  2. CARVEDILOL [Concomitant]
     Active Substance: CARVEDILOL
  3. EZETIMIBE [Concomitant]
     Active Substance: EZETIMIBE
  4. CALCIUM [Concomitant]
     Active Substance: CALCIUM
  5. VITAMIN B MULTI [Concomitant]
  6. OZEMPIC [Suspect]
     Active Substance: SEMAGLUTIDE
     Indication: Metabolic syndrome
  7. OZEMPIC [Suspect]
     Active Substance: SEMAGLUTIDE
     Indication: Hypertension

REACTIONS (6)
  - Rash [None]
  - Erythema [None]
  - Localised oedema [None]
  - Skin irritation [None]
  - Pruritus [None]
  - Infection [None]

NARRATIVE: CASE EVENT DATE: 20230202
